FAERS Safety Report 6887755-1 (Version None)
Quarter: 2010Q3

REPORT INFORMATION
  Report Type: 
  Country: None (occurrence: None)
  Receive Date: 20100726
  Receipt Date: 20100716
  Transmission Date: 20110219
  Serious: Yes (Death, Life-Threatening, Hospitalization)
  Sender: FDA-Public Use
  Company Number: 200308785

PATIENT
  Sex: Male

DRUGS (7)
  1. BERINERT [Suspect]
     Indication: CAPILLARY LEAK SYNDROME
     Dosage: 100 IU, DAILY DOSE QUANTITY: 100, DAILY DOSE UNIT: IU INTRAVENOUS
     Route: 042
     Dates: start: 20030701, end: 20030730
  2. KYBERNIN (ANTITHROMBIN III) [Suspect]
     Indication: SEPSIS
     Dosage: INTRAVENOUS
     Route: 042
     Dates: start: 20030527, end: 20030730
  3. ERYTHROZYTENKONZENTRATE (RED BLOOD CELLS, CONCENTRATED) [Suspect]
  4. PLASMA PROTEIN FRACTION (HUMAN) [Suspect]
  5. HUMAN-PPSB [Concomitant]
  6. SANDOGLOBULIN [Concomitant]
  7. PLATELETS [Concomitant]

REACTIONS (5)
  - CYTOMEGALOVIRUS INFECTION [None]
  - HEREDITARY DISORDER [None]
  - INFECTION [None]
  - LIVER DISORDER [None]
  - VERTICAL INFECTION TRANSMISSION [None]
